FAERS Safety Report 20671752 (Version 1)
Quarter: 2022Q2

REPORT INFORMATION
  Report Type: Spontaneous
  Country: US (occurrence: US)
  Receive Date: 20220405
  Receipt Date: 20220405
  Transmission Date: 20220721
  Serious: No
  Sender: FDA-Public Use
  Company Number: US-ALKEM LABORATORIES LIMITED-US-ALKEM-2022-01525

PATIENT
  Age: 6 Month

DRUGS (8)
  1. SIROLIMUS [Suspect]
     Active Substance: SIROLIMUS
     Indication: Evans syndrome
     Dosage: UNK
     Route: 065
  2. SIROLIMUS [Suspect]
     Active Substance: SIROLIMUS
     Indication: Hypogammaglobulinaemia
  3. RITUXIMAB [Suspect]
     Active Substance: RITUXIMAB
     Indication: Evans syndrome
     Dosage: UNK
     Route: 065
  4. RITUXIMAB [Suspect]
     Active Substance: RITUXIMAB
     Indication: Hypogammaglobulinaemia
  5. ELTROMBOPAG [Suspect]
     Active Substance: ELTROMBOPAG
     Indication: Evans syndrome
     Dosage: UNK
     Route: 065
  6. ELTROMBOPAG [Suspect]
     Active Substance: ELTROMBOPAG
     Indication: Hypogammaglobulinaemia
  7. FILGRASTIM [Suspect]
     Active Substance: FILGRASTIM
     Indication: Evans syndrome
     Dosage: UNK
     Route: 065
  8. FILGRASTIM [Suspect]
     Active Substance: FILGRASTIM
     Indication: Hypogammaglobulinaemia

REACTIONS (1)
  - Drug ineffective [Unknown]
